FAERS Safety Report 8394872-6 (Version None)
Quarter: 2012Q2

REPORT INFORMATION
  Report Type: 
  Country: None (occurrence: None)
  Receive Date: 20120530
  Receipt Date: 20120522
  Transmission Date: 20120825
  Serious: Yes (Other)
  Sender: FDA-Public Use
  Company Number: US-ELI_LILLY_AND_COMPANY-US201205008792

PATIENT
  Age: 40 Year
  Sex: Male
  Weight: 95.238 kg

DRUGS (2)
  1. COUMADIN [Concomitant]
  2. EFFIENT [Suspect]
     Indication: PERCUTANEOUS CORONARY INTERVENTION
     Dosage: UNK

REACTIONS (2)
  - INTRA-ABDOMINAL HAEMATOMA [None]
  - SURGERY [None]
